FAERS Safety Report 10071969 (Version 1)
Quarter: 2014Q1

REPORT INFORMATION
  Report Type: Spontaneous
  Country: TR (occurrence: None)
  Receive Date: 20140312
  Receipt Date: 20140312
  Transmission Date: 20141002
  Serious: Yes (Other)
  Sender: FDA-Public Use
  Company Number: 2012SA080044

PATIENT
  Age: 39 Year
  Sex: Female

DRUGS (4)
  1. ARAVA [Suspect]
     Indication: RHEUMATOID ARTHRITIS
     Route: 048
     Dates: start: 201101, end: 201206
  2. DOLOREX /00068902/ [Concomitant]
  3. PREDNOL [Concomitant]
  4. DELTACOTRIL [Concomitant]

REACTIONS (4)
  - Vaginal haemorrhage [None]
  - Maternal exposure during pregnancy [None]
  - Incorrect dose administered [None]
  - Ectopic pregnancy [None]
